FAERS Safety Report 5039741-4 (Version None)
Quarter: 2006Q2

REPORT INFORMATION
  Report Type: 
  Country: None (occurrence: None)
  Receive Date: 20060601
  Receipt Date: 20060119
  Transmission Date: 20061013
  Serious: No
  Sender: FDA-Public Use
  Company Number: 2006PV007288

PATIENT
  Age: 53 Year
  Sex: Female
  Weight: 102.9665 kg

DRUGS (5)
  1. BYETTA [Suspect]
     Indication: DIABETES MELLITUS NON-INSULIN-DEPENDENT
     Dosage: SEE IMAGE
     Route: 058
     Dates: start: 20050801, end: 20050901
  2. BYETTA [Suspect]
     Indication: DIABETES MELLITUS NON-INSULIN-DEPENDENT
     Dosage: SEE IMAGE
     Route: 058
     Dates: start: 20050901, end: 20051101
  3. GLYBURIDE AND METFORMIN HCL [Concomitant]
  4. HUMALOG [Concomitant]
  5. LANTUS [Concomitant]

REACTIONS (3)
  - ABDOMINAL PAIN [None]
  - ANOREXIA [None]
  - NAUSEA [None]
